FAERS Safety Report 8934468 (Version 1)
Quarter: 2012Q4

REPORT INFORMATION
  Report Type: 
  Country: IT (occurrence: IT)
  Receive Date: 20121129
  Receipt Date: 20121129
  Transmission Date: 20130627
  Serious: Yes (Hospitalization)
  Sender: FDA-Public Use
  Company Number: IT-SANOFI-AVENTIS-2012SA085206

PATIENT
  Age: 80 Year
  Sex: Female

DRUGS (8)
  1. LASIX [Suspect]
     Indication: HEART FAILURE
     Route: 048
     Dates: start: 20120801, end: 20121102
  2. VENLAFAXINE [Suspect]
     Indication: ALZHEIMER^S DISEASE
     Route: 048
     Dates: start: 20120101, end: 20121102
  3. TRITTICO [Suspect]
     Indication: ALZHEIMER^S DISEASE
     Dosage: strength: 75 mg
     Route: 048
     Dates: start: 20120101, end: 20121102
  4. GLYCERYL TRINITRATE [Concomitant]
     Route: 062
  5. BISOPROLOL HEMIFUMARATE [Concomitant]
     Route: 048
  6. CARDIOASPIRIN [Concomitant]
     Route: 048
  7. LANSOX [Concomitant]
  8. EXELON [Concomitant]
     Route: 062

REACTIONS (3)
  - Dyspnoea [Unknown]
  - Vertigo [Unknown]
  - Fall [Unknown]
